FAERS Safety Report 19349472 (Version 2)
Quarter: 2021Q2

REPORT INFORMATION
  Report Type: Spontaneous
  Country: FR (occurrence: FR)
  Receive Date: 20210531
  Receipt Date: 20210601
  Transmission Date: 20210717
  Serious: Yes (Hospitalization)
  Sender: FDA-Public Use
  Company Number: FR-BEH-2021132211

PATIENT
  Age: 40 Year
  Sex: Female
  Weight: 93 kg

DRUGS (3)
  1. TRASYLOL [Suspect]
     Active Substance: APROTININ
     Indication: AORTIC SURGERY
     Dosage: 4.5 MEGA?INTERNATIONAL UNIT, TOT
     Route: 042
     Dates: start: 20210319, end: 20210319
  2. EXACYL [Suspect]
     Active Substance: TRANEXAMIC ACID
     Indication: AORTIC SURGERY
     Dosage: 1 GRAM, TOT
     Route: 042
     Dates: start: 20210319, end: 20210319
  3. RIASTAP [Suspect]
     Active Substance: FIBRINOGEN HUMAN
     Indication: AORTIC SURGERY
     Dosage: 2 GRAM, TOT
     Route: 042
     Dates: start: 20210319, end: 20210319

REACTIONS (4)
  - No adverse event [Unknown]
  - Cerebral infarction [Recovered/Resolved with Sequelae]
  - Off label use [Unknown]
  - Ischaemic stroke [Recovered/Resolved with Sequelae]

NARRATIVE: CASE EVENT DATE: 20210320
